FAERS Safety Report 9753042 (Version 3)
Quarter: 2014Q2

REPORT INFORMATION
  Report Type: Spontaneous
  Country: IT (occurrence: IT)
  Receive Date: 20131213
  Receipt Date: 20140423
  Transmission Date: 20141212
  Serious: Yes (Hospitalization)
  Sender: FDA-Public Use
  Company Number: IT-PFIZER INC-2013353148

PATIENT
  Age: 82 Year
  Sex: Male

DRUGS (9)
  1. DIFLUCAN [Suspect]
     Indication: FUNGAL SKIN INFECTION
     Dosage: 200 MG, 1X/DAY
     Route: 048
     Dates: start: 20130614, end: 20130617
  2. COUMADIN [Suspect]
     Indication: ATRIAL FLUTTER
     Dosage: 1 DF, AS NEEDED
     Route: 048
     Dates: start: 20130101, end: 20130617
  3. TACHIDOL [Suspect]
     Indication: FUNGAL INFECTION
     Dosage: 3 DF, 1X/DAY
     Route: 048
     Dates: start: 20130614, end: 20130617
  4. METFORMIN HYDROCHLORIDE [Concomitant]
  5. CARDICOR [Concomitant]
  6. LANSOX [Concomitant]
  7. ZYLORIC [Concomitant]
  8. MITTOVAL [Concomitant]
  9. HUMALOG [Concomitant]

REACTIONS (4)
  - Erythema [Unknown]
  - Pruritus [Unknown]
  - Sopor [Unknown]
  - Decreased appetite [Unknown]
